FAERS Safety Report 4619941-5 (Version None)
Quarter: 2005Q1

REPORT INFORMATION
  Report Type: 
  Country: None (occurrence: None)
  Receive Date: 20050328
  Receipt Date: 20041210
  Transmission Date: 20050727
  Serious: Yes (Hospitalization, Other)
  Sender: FDA-Public Use
  Company Number: ES-ABBOTT-04P-144-0283105-00

PATIENT
  Sex: Female

DRUGS (8)
  1. DEPAKINE SOLUTION [Suspect]
     Indication: EPILEPSY
     Route: 042
     Dates: start: 20040716, end: 20040716
  2. DEPAKINE SOLUTION [Suspect]
     Dates: start: 20040716, end: 20040718
  3. DEPAKINE SOLUTION [Suspect]
     Dates: start: 20040719, end: 20040723
  4. ENALAPRIL [Concomitant]
     Indication: HYPERTENSION
     Route: 048
  5. CLOPIDOGREL [Concomitant]
     Indication: PLATELET AGGREGATION ABNORMAL
     Route: 048
  6. CLOPIDOGREL [Concomitant]
     Indication: CEREBROVASCULAR ACCIDENT
  7. METFORMIN HCL [Concomitant]
     Indication: DIABETES MELLITUS
     Route: 048
  8. ENOXAPARIN SODIUM [Concomitant]
     Indication: DRUG USE FOR UNKNOWN INDICATION
     Route: 048
     Dates: start: 20040714, end: 20040730

REACTIONS (3)
  - ENCEPHALITIS [None]
  - HYPERAMMONAEMIA [None]
  - METABOLIC ENCEPHALOPATHY [None]
